FAERS Safety Report 8531452-3 (Version None)
Quarter: 2012Q3

REPORT INFORMATION
  Report Type: 
  Country: None (occurrence: None)
  Receive Date: 20120723
  Receipt Date: 20120717
  Transmission Date: 20120928
  Serious: Yes (Death)
  Sender: FDA-Public Use
  Company Number: US-ALEXION-A201201372

PATIENT

DRUGS (1)
  1. SOLIRIS [Suspect]
     Indication: OFF LABEL USE
     Route: 042

REACTIONS (1)
  - DEATH [None]
